FAERS Safety Report 11491680 (Version 1)
Quarter: 2015Q3

REPORT INFORMATION
  Report Type: Spontaneous
  Country: FR (occurrence: FR)
  Receive Date: 20150910
  Receipt Date: 20150910
  Transmission Date: 20151125
  Serious: Yes (Other)
  Sender: FDA-Public Use
  Company Number: FR-JNJFOC-20150906918

PATIENT
  Age: 76 Year
  Sex: Female

DRUGS (5)
  1. IXPRIM [Suspect]
     Active Substance: ACETAMINOPHEN\TRAMADOL HYDROCHLORIDE
     Indication: MUSCULOSKELETAL PAIN
     Route: 048
     Dates: start: 20150722, end: 20150723
  2. INEXIUM [Suspect]
     Active Substance: ESOMEPRAZOLE
     Indication: MUSCULOSKELETAL PAIN
     Route: 048
     Dates: start: 20150723, end: 20150723
  3. INEXIUM [Suspect]
     Active Substance: ESOMEPRAZOLE
     Indication: MUSCULOSKELETAL PAIN
     Route: 048
     Dates: start: 20150722, end: 20150722
  4. BI-PROFENID [Concomitant]
     Active Substance: KETOPROFEN
     Indication: MUSCULOSKELETAL PAIN
     Route: 048
     Dates: start: 20150722
  5. IXPRIM [Suspect]
     Active Substance: ACETAMINOPHEN\TRAMADOL HYDROCHLORIDE
     Indication: MUSCULOSKELETAL PAIN
     Route: 048

REACTIONS (2)
  - Vomiting [Recovered/Resolved]
  - Incorrect dose administered [Recovered/Resolved]

NARRATIVE: CASE EVENT DATE: 20150723
